FAERS Safety Report 8828335 (Version 1)
Quarter: 2012Q4

REPORT INFORMATION
  Report Type: 
  Country: US (occurrence: US)
  Receive Date: 20121005
  Receipt Date: 20121005
  Transmission Date: 20130627
  Serious: No
  Sender: FDA-Public Use
  Company Number: US-PFIZER INC-2012245547

PATIENT
  Age: 52 Year
  Sex: Male
  Weight: 147 kg

DRUGS (24)
  1. LYRICA [Suspect]
     Indication: NERVE INJURY
     Dosage: UNK
     Route: 048
     Dates: start: 2005
  2. DURAGESIC [Concomitant]
     Dosage: 100 ug, every 72 hours
  3. LEVEMIR [Concomitant]
     Dosage: 35units in the morning and 40units at night
  4. PLAVIX [Concomitant]
     Dosage: 75 mg, 1x/day
  5. NORVASC [Concomitant]
     Dosage: 10 mg, 1x/day
  6. L-LYSINE [Concomitant]
     Dosage: 500 mg, 2x/day
  7. MULTIVITAMINS [Concomitant]
     Dosage: UNK, 1x/day
  8. FISH OIL [Concomitant]
     Dosage: 1000 mg, 2x/day
  9. SUPER B COMPLEX [Concomitant]
     Dosage: UNK, 1x/day
  10. FUROSEMIDE [Concomitant]
     Dosage: 40 mg, 1x/day
  11. CITALOPRAM [Concomitant]
     Dosage: 40 mg, 1x/day
  12. LORATADINE [Concomitant]
     Dosage: 10 mg, 1x/day
  13. OMEPRAZOLE [Concomitant]
     Dosage: 40 mg, 1x/day
  14. COLCRYS [Concomitant]
     Dosage: 0.6 mg, 2x/day
  15. GEMFIBROZIL [Concomitant]
     Dosage: 600 mg, 2x/day
  16. ALDACTONE [Concomitant]
     Dosage: 25 mg, 1x/day
  17. METOPROLOL [Concomitant]
     Dosage: 50 mg, 2x/day
  18. HYDROCODONE W/ACETAMINOPHEN [Concomitant]
     Indication: PAIN
     Dosage: 5/325 mg, as needed
  19. HYDRALAZINE [Concomitant]
     Dosage: 100 mg, 3x/day
  20. LOSARTAN POTASSIUM W/HYDROCHLOROTHIAZIDE [Concomitant]
     Dosage: 100/25 mg, 1x/day
  21. CLONAZEPAM [Concomitant]
     Dosage: 0.5 mg, 1x/day
  22. KLOR-CON M20 [Concomitant]
     Dosage: 20 mEq, 1x/day
  23. CLONIDINE [Concomitant]
     Dosage: 0.3 mg, 1x/day
  24. HUMALOG [Concomitant]
     Indication: DIABETES MELLITUS
     Dosage: UNK, as needed

REACTIONS (1)
  - Tremor [Not Recovered/Not Resolved]
